FAERS Safety Report 19861846 (Version 1)
Quarter: 2021Q3

REPORT INFORMATION
  Report Type: Spontaneous
  Country: DE (occurrence: DE)
  Receive Date: 20210921
  Receipt Date: 20210921
  Transmission Date: 20211014
  Serious: Yes (Life-Threatening, Hospitalization, Other)
  Sender: FDA-Public Use
  Company Number: NVSC2021DE211828

PATIENT
  Age: 35 Year
  Sex: Female
  Weight: 53 kg

DRUGS (4)
  1. CARBOPLATIN. [Suspect]
     Active Substance: CARBOPLATIN
     Indication: SQUAMOUS CELL CARCINOMA OF LUNG
     Dosage: UNK
     Route: 065
     Dates: start: 20210621
  2. IPILIMUMAB [Suspect]
     Active Substance: IPILIMUMAB
     Indication: SQUAMOUS CELL CARCINOMA OF LUNG
     Dosage: UNK (1 MILLIGRAM/KILOGRAM BODYWEIGHT)
     Route: 065
     Dates: start: 20210629
  3. PACLITAXEL. [Suspect]
     Active Substance: PACLITAXEL
     Indication: SQUAMOUS CELL CARCINOMA OF LUNG
     Dosage: UNK
     Route: 065
     Dates: start: 20210621
  4. NIVOLUMAB [Suspect]
     Active Substance: NIVOLUMAB
     Indication: SQUAMOUS CELL CARCINOMA OF LUNG
     Dosage: 360 MG
     Route: 065
     Dates: start: 20210621

REACTIONS (15)
  - Pancytopenia [Unknown]
  - Vascular device infection [Unknown]
  - Septic shock [Recovering/Resolving]
  - Febrile neutropenia [Not Recovered/Not Resolved]
  - Immune-mediated lung disease [Unknown]
  - Pneumonia [Unknown]
  - Respiratory failure [Recovering/Resolving]
  - Hypotension [Unknown]
  - Diarrhoea [Unknown]
  - Mucosal inflammation [Unknown]
  - Malignant neoplasm progression [Unknown]
  - Circulatory collapse [Unknown]
  - Tachycardia [Unknown]
  - Anaemia [Unknown]
  - Dermatitis allergic [Unknown]

NARRATIVE: CASE EVENT DATE: 20210629
